FAERS Safety Report 24242646 (Version 2)
Quarter: 2024Q3

REPORT INFORMATION
  Report Type: Spontaneous
  Country: US (occurrence: US)
  Receive Date: 20240823
  Receipt Date: 20240923
  Transmission Date: 20241017
  Serious: Yes (Hospitalization)
  Sender: OPKO HEALTH
  Company Number: US-OPKO PHARMACEUTICALS, LLC.-2024OPK00209

PATIENT
  Age: 81 Year
  Sex: Male

DRUGS (2)
  1. RAYALDEE [Suspect]
     Active Substance: CALCIFEDIOL
     Indication: Hyperparathyroidism secondary
     Dosage: 30 MCG, QD
     Route: 048
     Dates: start: 20231003, end: 20240810
  2. RAYALDEE [Suspect]
     Active Substance: CALCIFEDIOL
     Dosage: 60 MCG, QD
     Route: 048
     Dates: start: 20240811

REACTIONS (3)
  - Nasopharyngitis [Recovered/Resolved]
  - Pulmonary oedema [Recovered/Resolved]
  - Cardiac failure congestive [Recovered/Resolved]

NARRATIVE: CASE EVENT DATE: 20240602
